FAERS Safety Report 14658644 (Version 3)
Quarter: 2018Q4

REPORT INFORMATION
  Report Type: Spontaneous
  Country: US (occurrence: US)
  Receive Date: 20180320
  Receipt Date: 20181029
  Transmission Date: 20190204
  Serious: No
  Sender: FDA-Public Use
  Company Number: PHEH2018US010402

PATIENT
  Sex: Male

DRUGS (1)
  1. TRIAMCINOLONE ACETONIDE. [Suspect]
     Active Substance: TRIAMCINOLONE ACETONIDE
     Indication: RASH
     Dosage: 15 G, UNK
     Route: 065

REACTIONS (4)
  - Rash pruritic [Recovering/Resolving]
  - Product packaging issue [Unknown]
  - Rash erythematous [Recovering/Resolving]
  - Product expiration date issue [Unknown]
